FAERS Safety Report 19181179 (Version 1)
Quarter: 2021Q2

REPORT INFORMATION
  Report Type: Spontaneous
  Country: FR (occurrence: FR)
  Receive Date: 20210426
  Receipt Date: 20210426
  Transmission Date: 20210717
  Serious: Yes (Other)
  Sender: FDA-Public Use
  Company Number: FR-ORGANON-O2104FRA001456

PATIENT
  Age: 76 Year
  Sex: Female

DRUGS (5)
  1. TAREG [Suspect]
     Active Substance: VALSARTAN
     Indication: HYPERTENSION
     Dosage: 90 MILLIGRAM, QD,IN THE EVENING
     Route: 048
  2. TAREG [Suspect]
     Active Substance: VALSARTAN
     Dosage: 160 MILLIGRAM, QD,IN THE MORNING
     Route: 048
  3. EZETROL [Suspect]
     Active Substance: EZETIMIBE
     Indication: HYPERCHOLESTEROLAEMIA
     Dosage: 10 MILLIGRAM, QD
     Route: 048
  4. KARDEGIC [Suspect]
     Active Substance: ASPIRIN DL-LYSINE
     Indication: THROMBOSIS PROPHYLAXIS
     Dosage: 160 MILLIGRAM, QD (DOSAGE FORM: POWDER FOR ORAL SOLUTION IN SACHET)
     Route: 048
  5. LOXEN L P [Suspect]
     Active Substance: NICARDIPINE HYDROCHLORIDE
     Indication: HYPERTENSION
     Dosage: 50 MILLIGRAM, 0.5 A DAY, LOXEN LP 50 MG, PROLONGED?RELEASE CAPSULE
     Route: 048

REACTIONS (1)
  - Peripheral artery thrombosis [Recovering/Resolving]
